FAERS Safety Report 5267247-6 (Version None)
Quarter: 2007Q1

REPORT INFORMATION
  Report Type: 
  Country: None (occurrence: None)
  Receive Date: 20070316
  Receipt Date: 20070313
  Transmission Date: 20070707
  Serious: Yes (Disabling, Other)
  Sender: FDA-Public Use
  Company Number: CH-BRISTOL-MYERS SQUIBB COMPANY-13713953

PATIENT
  Sex: Male

DRUGS (4)
  1. REYATAZ [Suspect]
     Dates: start: 20040212
  2. LAMIVUDINE [Concomitant]
  3. ZIAGEN [Concomitant]
  4. RETROVIR [Concomitant]

REACTIONS (1)
  - WEIGHT INCREASED [None]
